FAERS Safety Report 5010324-5 (Version None)
Quarter: 2006Q2

REPORT INFORMATION
  Report Type: 
  Country: None (occurrence: None)
  Receive Date: 20060404
  Receipt Date: 20051109
  Transmission Date: 20061013
  Serious: Yes (Other)
  Sender: FDA-Public Use
  Company Number: US_0511123632

PATIENT
  Age: 77 Year
  Sex: Male

DRUGS (7)
  1. CYMBALTA [Suspect]
     Indication: PAIN
     Dosage: 60 MG, DAILY (1/D), ORAL
     Route: 048
     Dates: start: 20050907, end: 20051107
  2. METHADONE HCL [Concomitant]
  3. PROSCAR [Concomitant]
  4. AREDIA [Concomitant]
  5. CALCITRIOL [Concomitant]
  6. REMERON [Concomitant]
  7. PERCOCET [Concomitant]

REACTIONS (2)
  - ANAEMIA [None]
  - THROMBOCYTOPENIA [None]
